FAERS Safety Report 22172380 (Version 3)
Quarter: 2025Q4

REPORT INFORMATION
  Report Type: Spontaneous
  Country: EU (occurrence: EU)
  Receive Date: 20230404
  Receipt Date: 20251112
  Transmission Date: 20260118
  Serious: Yes (Hospitalization, Other)
  Sender: SANOFI AVENTIS
  Company Number: EU-SA-SAC20230403000871

PATIENT
  Age: 23 Year
  Sex: Female

DRUGS (1)
  1. DUPILUMAB [Suspect]
     Active Substance: DUPILUMAB
     Indication: Dermatitis atopic
     Dosage: 1 DF, QOW
     Route: 065
     Dates: start: 20211019, end: 20230221

REACTIONS (4)
  - Pericarditis constrictive [Not Recovered/Not Resolved]
  - Pericarditis [Unknown]
  - Viral infection [Unknown]
  - Pericardial fibrosis [Unknown]

NARRATIVE: CASE EVENT DATE: 20230211
